FAERS Safety Report 20168632 (Version 1)
Quarter: 2021Q4

REPORT INFORMATION
  Report Type: Spontaneous
  Country: US (occurrence: US)
  Receive Date: 20211210
  Receipt Date: 20211210
  Transmission Date: 20220303
  Serious: No
  Sender: FDA-Public Use
  Company Number: ENDG21-03749

PATIENT
  Age: 73 Year
  Sex: Female

DRUGS (2)
  1. IMIPRAMINE HYDROCHLORIDE [Suspect]
     Active Substance: IMIPRAMINE HYDROCHLORIDE
     Indication: Depression
     Dosage: 1.5 DF, DAILY
     Route: 065
     Dates: start: 20210506, end: 2021
  2. IMIPRAMINE HYDROCHLORIDE [Suspect]
     Active Substance: IMIPRAMINE HYDROCHLORIDE
     Dosage: 0.5 DF, DAILY
     Route: 065
     Dates: start: 2021

REACTIONS (3)
  - Lethargy [Unknown]
  - Fatigue [Unknown]
  - Product formulation issue [Unknown]

NARRATIVE: CASE EVENT DATE: 20210501
